FAERS Safety Report 25571414 (Version 1)
Quarter: 2025Q3

REPORT INFORMATION
  Report Type: Report from Study
  Country: US (occurrence: US)
  Receive Date: 20250717
  Receipt Date: 20250717
  Transmission Date: 20251020
  Serious: Yes (Other)
  Sender: RANBAXY
  Company Number: US-SUN PHARMACEUTICAL INDUSTRIES INC-2025R1-516951

PATIENT
  Age: 73 Year
  Sex: Female

DRUGS (1)
  1. PREDNISONE [Suspect]
     Active Substance: PREDNISONE
     Indication: Renal transplant
     Route: 065

REACTIONS (8)
  - Bronchiectasis [Unknown]
  - Pulmonary tuberculosis [Unknown]
  - Secretion discharge [Unknown]
  - Lower respiratory tract infection [Unknown]
  - Haemophilus infection [Unknown]
  - Staphylococcal infection [Not Recovered/Not Resolved]
  - Pseudomonas infection [Unknown]
  - Mycobacterial infection [Unknown]
